FAERS Safety Report 8329323-0 (Version None)
Quarter: 2012Q2

REPORT INFORMATION
  Report Type: 
  Country: None (occurrence: None)
  Receive Date: 20120502
  Receipt Date: 20110429
  Transmission Date: 20120825
  Serious: No
  Sender: FDA-Public Use
  Company Number: US-ASTRAZENECA-2007UW04767

PATIENT
  Sex: Female

DRUGS (1)
  1. FASLODEX [Suspect]
     Indication: BREAST CANCER
     Route: 030
     Dates: start: 20020101

REACTIONS (6)
  - MUSCLE SPASMS [None]
  - INSOMNIA [None]
  - MOUTH ULCERATION [None]
  - SENSORY DISTURBANCE [None]
  - PAIN IN EXTREMITY [None]
  - FEELING HOT [None]
